FAERS Safety Report 13927710 (Version 1)
Quarter: 2017Q3

REPORT INFORMATION
  Report Type: Report from Study
  Country: None (occurrence: CO)
  Receive Date: 20170901
  Receipt Date: 20170901
  Transmission Date: 20171127
  Serious: Yes (Death)
  Sender: FDA-Public Use
  Company Number: CO-ABBVIE-17P-036-2090352-00

PATIENT
  Age: 54 Year
  Sex: Male
  Weight: 54 kg

DRUGS (1)
  1. ZEMPLAR [Suspect]
     Active Substance: PARICALCITOL
     Indication: HYPERPARATHYROIDISM SECONDARY
     Route: 048
     Dates: start: 20161209, end: 20170727

REACTIONS (3)
  - Fall [Fatal]
  - Cerebral haemorrhage [Fatal]
  - Road traffic accident [Fatal]

NARRATIVE: CASE EVENT DATE: 20170818
